FAERS Safety Report 9206921 (Version 2)
Quarter: 2013Q2

REPORT INFORMATION
  Report Type: Spontaneous
  Country: US (occurrence: US)
  Receive Date: 20130403
  Receipt Date: 20130405
  Transmission Date: 20140414
  Serious: No
  Sender: FDA-Public Use
  Company Number: US-B.I. PHARMACEUTICALS,INC./RIDGEFIELD-2013-BI-08094BP

PATIENT
  Age: 52 Year
  Sex: Male
  Weight: 82 kg

DRUGS (2)
  1. COMBIVENT [Suspect]
     Indication: BRONCHITIS CHRONIC
     Route: 055
     Dates: start: 1998
  2. ADVAIR [Concomitant]
     Indication: BRONCHITIS CHRONIC
     Route: 055
     Dates: start: 20130222

REACTIONS (2)
  - Throat irritation [Recovered/Resolved]
  - Product quality issue [Recovered/Resolved]
